FAERS Safety Report 5130753-9 (Version None)
Quarter: 2006Q3

REPORT INFORMATION
  Report Type: 
  Country: None (occurrence: None)
  Receive Date: 20060829
  Receipt Date: 20060516
  Transmission Date: 20061208
  Serious: No
  Sender: FDA-Public Use
  Company Number: PHEH2006US06475

PATIENT
  Sex: Male

DRUGS (14)
  1. EXJADE [Suspect]
     Indication: BLOOD IRON INCREASED
     Dosage: 1000 MG
     Dates: start: 20060101
  2. TIGAN [Concomitant]
  3. ACYCLOVIR [Concomitant]
  4. METHYLPREDNISOLONE [Concomitant]
  5. ETHAMBUTOL HYDROCHLORIDE [Concomitant]
  6. CIPRO [Concomitant]
  7. BIAXIN [Concomitant]
  8. CELLCEPT [Concomitant]
  9. BACTRIM [Concomitant]
  10. FOLATE SODIUM (FOLATE SODIUM) [Concomitant]
  11. DIFLUCAN [Concomitant]
  12. ALPHAGAN [Concomitant]
  13. LUMIGAN [Concomitant]
  14. TIMOPTIC [Concomitant]

REACTIONS (2)
  - CANDIDIASIS [None]
  - SERUM FERRITIN INCREASED [None]
